FAERS Safety Report 5229235-5 (Version None)
Quarter: 2007Q1

REPORT INFORMATION
  Report Type: 
  Country: None (occurrence: None)
  Receive Date: 20061201
  Receipt Date: 20060803
  Transmission Date: 20070707
  Serious: No
  Sender: FDA-Public Use
  Company Number: US200608001057

PATIENT
  Age: 59 Year
  Sex: Female

DRUGS (2)
  1. CYMBALTA [Suspect]
     Indication: FIBROMYALGIA
     Dosage: 30 MG
     Dates: start: 20060703
  2. PREVACID [Concomitant]

REACTIONS (5)
  - ANXIETY [None]
  - BRADYPHRENIA [None]
  - DISSOCIATION [None]
  - HYPERHIDROSIS [None]
  - SOMNOLENCE [None]
